FAERS Safety Report 9904765 (Version 2)
Quarter: 2014Q1

REPORT INFORMATION
  Report Type: Spontaneous
  Country: US (occurrence: US)
  Receive Date: 20140218
  Receipt Date: 20140226
  Transmission Date: 20141002
  Serious: No
  Sender: FDA-Public Use
  Company Number: US-BAYER-2014-024909

PATIENT
  Age: 61 Year
  Sex: Female
  Weight: 52 kg

DRUGS (5)
  1. ALEVE CAPLET [Suspect]
     Indication: ARTHRITIS
     Dosage: 1 DF, QD
     Route: 048
     Dates: start: 2013
  2. AMPYRA [Concomitant]
  3. AUBAGIO [Concomitant]
  4. VITAMIN B12 [Concomitant]
  5. FISH OIL [Concomitant]

REACTIONS (4)
  - Throat irritation [Recovered/Resolved]
  - Wrong technique in drug usage process [None]
  - Foreign body [Recovered/Resolved]
  - Incorrect drug administration duration [None]
